FAERS Safety Report 15037388 (Version 1)
Quarter: 2018Q2

REPORT INFORMATION
  Report Type: Spontaneous
  Country: MX (occurrence: MX)
  Receive Date: 20180620
  Receipt Date: 20180620
  Transmission Date: 20180711
  Serious: Yes (Other)
  Sender: FDA-Public Use
  Company Number: MX-009507513-1806MEX007778

PATIENT
  Sex: Male

DRUGS (1)
  1. KEYTRUDA [Suspect]
     Active Substance: PEMBROLIZUMAB
     Indication: NON-SMALL CELL LUNG CANCER
     Dosage: STRENGTH: 100MG/4ML VIAL

REACTIONS (6)
  - Pulmonary tuberculosis [Recovering/Resolving]
  - Pyrexia [Recovering/Resolving]
  - Malignant neoplasm progression [Recovering/Resolving]
  - Hepatitis [Recovering/Resolving]
  - Product use issue [Unknown]
  - Pneumonitis [Recovering/Resolving]
